FAERS Safety Report 5813700-3 (Version None)
Quarter: 2008Q3

REPORT INFORMATION
  Report Type: 
  Country: None (occurrence: None)
  Receive Date: 20080716
  Receipt Date: 20080716
  Transmission Date: 20090109
  Serious: No
  Sender: FDA-Public Use
  Company Number: None

PATIENT

DRUGS (1)
  1. SUN BATH PROTECTIVE TANNING LOTION [Suspect]

REACTIONS (2)
  - ERYTHEMA [None]
  - SKIN IRRITATION [None]
